FAERS Safety Report 24549488 (Version 1)
Quarter: 2024Q4

REPORT INFORMATION
  Report Type: Spontaneous
  Country: US (occurrence: None)
  Receive Date: 20241024
  Receipt Date: 20241024
  Transmission Date: 20250114
  Serious: Yes (Life-Threatening, Hospitalization, Disabling, Other)
  Sender: Public
  Company Number: None

PATIENT
  Sex: Female

DRUGS (7)
  1. GADOLINIUM [Suspect]
     Active Substance: GADOLINIUM
     Indication: Magnetic resonance imaging
     Route: 042
  2. DILAUDID [Suspect]
     Active Substance: HYDROMORPHONE HYDROCHLORIDE
     Route: 042
  3. ZONISAMIDE [Concomitant]
     Active Substance: ZONISAMIDE
  4. NAYZILAM [Concomitant]
     Active Substance: MIDAZOLAM
  5. VITAMIN C [Concomitant]
     Active Substance: ASCORBIC ACID
  6. D [Concomitant]
  7. elderberry [Concomitant]

REACTIONS (19)
  - Speech disorder [None]
  - Dysgraphia [None]
  - Paralysis [None]
  - Locked-in syndrome [None]
  - Dysgeusia [None]
  - Burning sensation [None]
  - Middle insomnia [None]
  - Secretion discharge [None]
  - Nervous system disorder [None]
  - Dysphemia [None]
  - Tremor [None]
  - Gait disturbance [None]
  - Cognitive disorder [None]
  - Fatigue [None]
  - Reduced parasympathetic activity [None]
  - Dyspnoea [None]
  - Syncope [None]
  - Transient ischaemic attack [None]
  - Gadolinium deposition disease [None]

NARRATIVE: CASE EVENT DATE: 20180216
